FAERS Safety Report 15490496 (Version 2)
Quarter: 2018Q4

REPORT INFORMATION
  Report Type: Spontaneous
  Country: US (occurrence: US)
  Receive Date: 20181011
  Receipt Date: 20181025
  Transmission Date: 20190205
  Serious: Yes (Hospitalization, Other)
  Sender: FDA-Public Use
  Company Number: US-ACTELION-A-US2018-179848

PATIENT
  Age: 58 Year
  Sex: Female

DRUGS (9)
  1. ASPIRIN. [Concomitant]
     Active Substance: ASPIRIN
     Dosage: 81 MG, QD
     Route: 048
  2. SILDENAFIL. [Concomitant]
     Active Substance: SILDENAFIL
     Dosage: 20 MG, QD
     Route: 048
  3. METOPROLOL SUCCINATE. [Concomitant]
     Active Substance: METOPROLOL SUCCINATE
     Dosage: 25 MG, QD
     Route: 048
  4. CALCIUM ACETATE. [Concomitant]
     Active Substance: CALCIUM ACETATE
     Dosage: 667 MG, TID
     Route: 048
  5. WARFARIN [Concomitant]
     Active Substance: WARFARIN
     Dosage: 2 MG, QD, 3-4 AS DIRECTED
     Route: 048
  6. OPSUMIT [Suspect]
     Active Substance: MACITENTAN
     Indication: PULMONARY ARTERIAL HYPERTENSION
     Dosage: 10 MG, QD
     Route: 048
     Dates: start: 20170622
  7. NITROGLYCERIN. [Concomitant]
     Active Substance: NITROGLYCERIN
     Dosage: .4 MG, PRN
     Route: 048
  8. PREDNISONE. [Concomitant]
     Active Substance: PREDNISONE
     Dosage: 5 MG, QD
     Route: 048
  9. CINACALCET. [Concomitant]
     Active Substance: CINACALCET
     Dosage: 90 MG, QD
     Route: 048

REACTIONS (27)
  - Dialysis [Unknown]
  - Cerebrovascular accident [Recovered/Resolved]
  - Coronary artery disease [Unknown]
  - Right ventricular failure [Recovered/Resolved]
  - Akinesia [Unknown]
  - Left ventricular dysfunction [Unknown]
  - Mitral valve incompetence [Unknown]
  - Mitral valve calcification [Unknown]
  - Dyspnoea [Recovered/Resolved]
  - Renal transplant [Unknown]
  - Dyspepsia [Recovered/Resolved]
  - Chest pain [Recovered/Resolved]
  - Ischaemic cardiomyopathy [Unknown]
  - Ejection fraction decreased [Unknown]
  - Tricuspid valve thickening [Unknown]
  - Acute coronary syndrome [Recovered/Resolved]
  - Percutaneous coronary intervention [Recovered/Resolved]
  - Vertebral artery thrombosis [Unknown]
  - Cardiac aneurysm [Unknown]
  - Systemic lupus erythematosus [Unknown]
  - End stage renal disease [Unknown]
  - Hypotension [Unknown]
  - Cardiac failure [Unknown]
  - Tricuspid valve incompetence [Unknown]
  - Pulmonary artery dilatation [Unknown]
  - Aortic dilatation [Unknown]
  - Aortic arteriosclerosis [Unknown]

NARRATIVE: CASE EVENT DATE: 20180628
